FAERS Safety Report 4381039-1 (Version None)
Quarter: 2004Q2

REPORT INFORMATION
  Report Type: 
  Country: None (occurrence: None)
  Receive Date: 20040601
  Receipt Date: 20040324
  Transmission Date: 20050107
  Serious: No
  Sender: FDA-Public Use
  Company Number: FABR-10517

PATIENT
  Age: 33 Year
  Sex: Female
  Weight: 93.6 kg

DRUGS (8)
  1. FABRAZYME [Suspect]
     Indication: FABRY'S DISEASE
     Dosage: 1 MG/KG Q2WKS IV
     Route: 042
     Dates: start: 20031115
  2. LISINOPRIL [Concomitant]
  3. TRAZODONE HCL [Concomitant]
  4. CARBAMAZEPINE [Concomitant]
  5. OMEPRAZOLE [Concomitant]
  6. ORTHO EVRA [Concomitant]
  7. TYLENOL [Concomitant]
  8. MOTRIN [Concomitant]

REACTIONS (1)
  - DIZZINESS [None]
